FAERS Safety Report 16460220 (Version 1)
Quarter: 2019Q2

REPORT INFORMATION
  Report Type: Spontaneous
  Country: JP (occurrence: JP)
  Receive Date: 20190620
  Receipt Date: 20190620
  Transmission Date: 20190711
  Serious: Yes (Other)
  Sender: FDA-Public Use
  Company Number: JP-PFIZER INC-2019254934

PATIENT
  Age: 33 Year
  Sex: Female

DRUGS (5)
  1. ETOPOSIDE. [Suspect]
     Active Substance: ETOPOSIDE
     Indication: METASTATIC CHORIOCARCINOMA
     Dosage: UNK
  2. VINCRISTINE [Suspect]
     Active Substance: VINCRISTINE
     Indication: METASTATIC CHORIOCARCINOMA
     Dosage: UNK
  3. ACTINOMYCIN D [Suspect]
     Active Substance: DACTINOMYCIN
     Indication: METASTATIC CHORIOCARCINOMA
     Dosage: UNK
  4. METHOTREXATE 1000MG [Suspect]
     Active Substance: METHOTREXATE
     Indication: METASTATIC CHORIOCARCINOMA
     Dosage: 1000 MG/M2, UNK
  5. CYCLOPHOSPHAMIDE. [Suspect]
     Active Substance: CYCLOPHOSPHAMIDE
     Indication: METASTATIC CHORIOCARCINOMA
     Dosage: UNK

REACTIONS (2)
  - Renal impairment [Unknown]
  - Drug level increased [Unknown]
